FAERS Safety Report 25776813 (Version 1)
Quarter: 2025Q3

REPORT INFORMATION
  Report Type: Spontaneous
  Country: US (occurrence: US)
  Receive Date: 20250909
  Receipt Date: 20250909
  Transmission Date: 20251021
  Serious: No
  Sender: DOMPE FARMACEUTICI
  Company Number: US-FARMAPROD-202503-0968

PATIENT
  Sex: Female

DRUGS (9)
  1. OXERVATE [Suspect]
     Active Substance: CENEGERMIN-BKBJ
     Indication: Neurotrophic keratopathy
     Route: 047
     Dates: start: 20240618, end: 20240813
  2. OXERVATE [Suspect]
     Active Substance: CENEGERMIN-BKBJ
     Route: 047
     Dates: start: 20250227
  3. HUMIRA [Concomitant]
     Active Substance: ADALIMUMAB
  4. TYLENOL [Concomitant]
     Active Substance: ACETAMINOPHEN
  5. ACYCLOVIR [Concomitant]
     Active Substance: ACYCLOVIR
  6. AMLODIPINE BESYLATE [Concomitant]
     Active Substance: AMLODIPINE BESYLATE
  7. LORAZEPAM [Concomitant]
     Active Substance: LORAZEPAM
  8. LATANOPROST [Concomitant]
     Active Substance: LATANOPROST
  9. MOXIFLOXACIN [Concomitant]
     Active Substance: MOXIFLOXACIN

REACTIONS (8)
  - Eye swelling [Recovering/Resolving]
  - Periorbital pain [Recovering/Resolving]
  - Headache [Recovering/Resolving]
  - Lymphadenopathy [Recovering/Resolving]
  - Rhinorrhoea [Recovering/Resolving]
  - Hot flush [Recovering/Resolving]
  - Peripheral coldness [Recovering/Resolving]
  - Fall [Unknown]
